FAERS Safety Report 7134030-6 (Version None)
Quarter: 2010Q4

REPORT INFORMATION
  Report Type: 
  Country: None (occurrence: None)
  Receive Date: 20101203
  Receipt Date: 20101124
  Transmission Date: 20110411
  Serious: Yes (Hospitalization, Other)
  Sender: FDA-Public Use
  Company Number: US-JNJFOC-20101108322

PATIENT
  Age: 79 Year
  Sex: Female
  Weight: 99.79 kg

DRUGS (12)
  1. TYLENOL W/ CODEINE NO. 3 [Suspect]
     Indication: PAIN
     Dosage: SINCE 4 YEARS
     Route: 048
  2. TYLENOL W/ CODEINE NO. 3 [Suspect]
     Indication: SPINAL COLUMN STENOSIS
     Dosage: SINCE 4 YEARS
     Route: 048
  3. TYLENOL W/ CODEINE NO. 3 [Suspect]
     Indication: ARTHRITIS
     Dosage: SINCE 4 YEARS
     Route: 048
  4. CHANTIX [Suspect]
     Indication: SMOKING CESSATION THERAPY
     Route: 048
  5. VITAMIN D [Concomitant]
     Indication: MEDICAL DIET
     Dosage: SINCE 2 YEARS
     Route: 048
  6. METFORMIN [Concomitant]
     Indication: GLUCOSE TOLERANCE IMPAIRED
     Route: 065
  7. METFORMIN [Concomitant]
     Dosage: SINCE 2000
     Route: 065
  8. METFORMIN [Concomitant]
     Dosage: SINCE 2000
     Route: 065
  9. METFORMIN [Concomitant]
     Dosage: SINCE 2000
     Route: 065
  10. METFORMIN [Concomitant]
     Dosage: SINCE 2000
     Route: 065
  11. METFORMIN [Concomitant]
     Route: 065
  12. COREG [Concomitant]
     Indication: HYPERTENSION
     Dosage: SINCE 10 YEARS
     Route: 048

REACTIONS (4)
  - BLOOD COUNT ABNORMAL [None]
  - MALAISE [None]
  - OEDEMA PERIPHERAL [None]
  - PRURITUS [None]
